FAERS Safety Report 8481219-X (Version None)
Quarter: 2012Q2

REPORT INFORMATION
  Report Type: 
  Country: None (occurrence: None)
  Receive Date: 20120618
  Receipt Date: 20120612
  Transmission Date: 20120825
  Serious: Yes (Death, Life-Threatening, Hospitalization)
  Sender: FDA-Public Use
  Company Number: 2012SP022133

PATIENT
  Age: 61 Year
  Sex: Female

DRUGS (11)
  1. BACTRIM DS [Concomitant]
  2. DECADRON [Concomitant]
  3. LEVOTHYROXINE SODIUM [Concomitant]
  4. VERAPAMIL [Concomitant]
  5. TEMODAR [Suspect]
     Indication: GLIOBLASTOMA MULTIFORME
     Dosage: 140 MG; QD;PO
     Route: 048
     Dates: start: 20111025, end: 20111115
  6. HYDROCHLOROTHIAZIDE [Concomitant]
  7. OMEPRAZOLE [Concomitant]
  8. SYMBICORT [Concomitant]
  9. RANITIDINE [Concomitant]
  10. POTASSIUM CHLORIDE [Concomitant]
  11. SIMVASTATIN [Concomitant]

REACTIONS (1)
  - APPARENT LIFE THREATENING EVENT [None]
